APPROVED DRUG PRODUCT: OCTREOTIDE ACETATE
Active Ingredient: OCTREOTIDE ACETATE
Strength: EQ 0.5MG BASE/ML
Dosage Form/Route: INJECTABLE;INJECTION
Application: A216839 | Product #001 | TE Code: AP
Applicant: GLAND PHARMA LTD
Approved: Jun 22, 2023 | RLD: No | RS: No | Type: RX